FAERS Safety Report 8324705-5 (Version None)
Quarter: 2012Q2

REPORT INFORMATION
  Report Type: 
  Country: None (occurrence: None)
  Receive Date: 20120501
  Receipt Date: 20120424
  Transmission Date: 20120825
  Serious: Yes (Hospitalization)
  Sender: FDA-Public Use
  Company Number: GR-UCBSA-056006

PATIENT
  Age: 67 Year
  Sex: Female

DRUGS (7)
  1. DANYCOLIN [Concomitant]
     Indication: PROPHYLACTIC CHEMOTHERAPY
     Route: 048
     Dates: start: 20111010
  2. METHOTREXATE [Concomitant]
     Indication: RHEUMATOID ARTHRITIS
     Route: 048
     Dates: start: 20110611
  3. CIMZIA [Suspect]
     Indication: RHEUMATOID ARTHRITIS
  4. NEVROBION [Concomitant]
     Indication: PROPHYLACTIC CHEMOTHERAPY
     Route: 048
  5. CALCIUM CARBONATE [Concomitant]
     Indication: OSTEOPOROSIS
     Dosage: DOSE PER INTAKE: 1
     Route: 048
  6. PREDNISOLONE [Concomitant]
     Indication: RHEUMATOID ARTHRITIS
     Route: 048
     Dates: start: 20090611
  7. FLUOXETINE [Concomitant]
     Indication: DEPRESSION
     Route: 048

REACTIONS (1)
  - COORDINATION ABNORMAL [None]
